FAERS Safety Report 10178229 (Version 1)
Quarter: 2014Q2

REPORT INFORMATION
  Report Type: Spontaneous
  Country: NL (occurrence: NL)
  Receive Date: 20140519
  Receipt Date: 20140519
  Transmission Date: 20141212
  Serious: Yes (Hospitalization)
  Sender: FDA-Public Use
  Company Number: NL-AMGEN INC.-NLDSP2011070983

PATIENT
  Age: 61 Year
  Sex: Female

DRUGS (2)
  1. NPLATE [Suspect]
     Indication: IMMUNE THROMBOCYTOPENIC PURPURA
     Dosage: 1.5 MUG/KG, QWK
     Route: 058
     Dates: start: 20110211, end: 20130723
  2. NPLATE [Suspect]
     Route: 058

REACTIONS (3)
  - Haemorrhage [Unknown]
  - Hospitalisation [Unknown]
  - Adverse drug reaction [Unknown]
